FAERS Safety Report 20033429 (Version 3)
Quarter: 2021Q4

REPORT INFORMATION
  Report Type: Spontaneous
  Country: JP (occurrence: JP)
  Receive Date: 20211104
  Receipt Date: 20211208
  Transmission Date: 20220303
  Serious: Yes (Other)
  Sender: FDA-Public Use
  Company Number: JP-ASTELLAS-2021JP020248

PATIENT
  Sex: Male

DRUGS (4)
  1. LINACLOTIDE [Suspect]
     Active Substance: LINACLOTIDE
     Indication: Constipation
     Dosage: 0.5 MG/DAY, UNKNOWN FREQ., AFTER DINNER
     Route: 048
     Dates: start: 20211008, end: 20211010
  2. BISOPROLOL FUMARATE [Concomitant]
     Active Substance: BISOPROLOL FUMARATE
     Indication: Product used for unknown indication
     Dosage: 2.5 G, QD
     Route: 048
  3. AMLODIPINE BESILATE;VALSARTAN [Concomitant]
     Indication: Product used for unknown indication
     Dosage: 1 UNKNOWN UNIT, UNKNOWN FREQ
     Route: 048
  4. ALOGLIPTIN BENZOATE\METFORMIN HYDROCHLORIDE [Concomitant]
     Active Substance: ALOGLIPTIN BENZOATE\METFORMIN HYDROCHLORIDE
     Indication: Product used for unknown indication
     Dosage: 1 UNKNOWN UNIT, UNKNOWN FREQ.
     Route: 048

REACTIONS (2)
  - Urinary retention [Recovered/Resolved]
  - Product use issue [Unknown]

NARRATIVE: CASE EVENT DATE: 20211008
